FAERS Safety Report 5445769-2 (Version None)
Quarter: 2007Q3

REPORT INFORMATION
  Report Type: 
  Country: None (occurrence: None)
  Receive Date: 20070904
  Receipt Date: 20070821
  Transmission Date: 20080115
  Serious: Yes (Hospitalization)
  Sender: FDA-Public Use
  Company Number: B0485190A

PATIENT
  Age: 44 Year
  Sex: Male

DRUGS (2)
  1. LAMOTRIGINE [Suspect]
     Indication: EPILEPSY
     Dosage: 200 MG / PER DAY /
  2. PHENYTOIN [Concomitant]

REACTIONS (7)
  - AGITATION [None]
  - COORDINATION ABNORMAL [None]
  - DELUSION [None]
  - DIZZINESS [None]
  - NAUSEA [None]
  - PSYCHOTIC DISORDER [None]
  - SPEECH DISORDER [None]
